FAERS Safety Report 7461571-4 (Version None)
Quarter: 2011Q2

REPORT INFORMATION
  Report Type: 
  Country: None (occurrence: None)
  Receive Date: 20110506
  Receipt Date: 20110502
  Transmission Date: 20111010
  Serious: Yes (Other)
  Sender: FDA-Public Use
  Company Number: US-ROXANE LABORATORIES, INC.-2011-RO-00602RO

PATIENT
  Age: 67 Year
  Sex: Female

DRUGS (9)
  1. PHENYTOIN [Suspect]
     Indication: PROPHYLAXIS
     Dosage: 460 MG
  2. CLONAZEPAM [Suspect]
     Indication: ANXIETY
     Dosage: 3 MG
  3. OXCARBAZEPINE [Suspect]
     Indication: BIPOLAR I DISORDER
  4. OXCARBAZEPINE [Suspect]
     Dosage: 750 MG
  5. TOPIRAMATE [Suspect]
     Dosage: 275 MG
  6. TOPIRAMATE [Suspect]
     Dosage: 250 MG
  7. PHENYTOIN [Suspect]
     Dosage: 430 MG
  8. TOPIRAMATE [Suspect]
     Indication: PROPHYLAXIS
     Dosage: 300 MG
  9. QUETIAPINE [Suspect]
     Indication: BIPOLAR I DISORDER
     Dosage: 50 MG

REACTIONS (2)
  - DRUG INTERACTION [None]
  - TOXICITY TO VARIOUS AGENTS [None]
